FAERS Safety Report 7426323-X (Version None)
Quarter: 2011Q2

REPORT INFORMATION
  Report Type: 
  Country: None (occurrence: None)
  Receive Date: 20110420
  Receipt Date: 20110408
  Transmission Date: 20111010
  Serious: Yes (Other)
  Sender: FDA-Public Use
  Company Number: B0712402A

PATIENT
  Age: 92 Year
  Sex: Female
  Weight: 57 kg

DRUGS (9)
  1. ARIXTRA [Suspect]
     Indication: ATRIAL FIBRILLATION
     Dosage: 2.5MG PER DAY
     Route: 058
     Dates: start: 20110221, end: 20110303
  2. LEVOTHYROX [Concomitant]
     Route: 065
  3. BISOPROLOL [Concomitant]
     Route: 065
  4. DIFFU K [Concomitant]
     Route: 065
  5. ZOPICLONE [Concomitant]
     Route: 065
  6. LOVENOX [Suspect]
     Indication: ATRIAL FIBRILLATION
     Route: 058
     Dates: start: 20110303, end: 20110306
  7. FUROSEMIDE [Concomitant]
     Route: 065
  8. ALLOPURINOL [Concomitant]
     Route: 065
  9. EXELON [Concomitant]
     Route: 065

REACTIONS (2)
  - THROMBOCYTOPENIA [None]
  - OFF LABEL USE [None]
